FAERS Safety Report 8123103-7 (Version None)
Quarter: 2012Q1

REPORT INFORMATION
  Report Type: 
  Country: None (occurrence: None)
  Receive Date: 20120208
  Receipt Date: 20120206
  Transmission Date: 20120608
  Serious: No
  Sender: FDA-Public Use
  Company Number: US-PFIZER INC-2012032557

PATIENT
  Sex: Female
  Weight: 54.422 kg

DRUGS (4)
  1. PREMARIN [Concomitant]
     Dosage: 0.3 MG, UNK
  2. TOPROL-XL [Concomitant]
     Dosage: 250 MG, 2X/DAY
  3. LIPITOR [Suspect]
     Indication: BLOOD TRIGLYCERIDES INCREASED
     Dosage: 10 MG, 1X/DAY
     Route: 048
     Dates: start: 19990101, end: 20040101
  4. LIPITOR [Suspect]
     Indication: BLOOD CHOLESTEROL INCREASED
     Dosage: 10 MG, 1X/DAY
     Route: 048

REACTIONS (2)
  - DRUG DOSE OMISSION [None]
  - MUSCLE SPASMS [None]
